FAERS Safety Report 9898054 (Version 3)
Quarter: 2014Q2

REPORT INFORMATION
  Report Type: Report from Study
  Country: US (occurrence: US)
  Receive Date: 20140214
  Receipt Date: 20140528
  Transmission Date: 20141212
  Serious: Yes (Other)
  Sender: FDA-Public Use
  Company Number: US-ALEXION-A201202744

PATIENT
  Sex: 0

DRUGS (16)
  1. PENICILLIN                         /00000901/ [Concomitant]
     Indication: PRODUCT USED FOR UNKNOWN INDICATION
     Dosage: UNK
     Route: 065
     Dates: start: 20110613
  2. ADVIL                              /00109201/ [Concomitant]
     Indication: PAIN
     Dosage: UNK
     Route: 065
     Dates: start: 20111018
  3. ASPIRIN [Concomitant]
     Indication: ANTICOAGULATION DRUG LEVEL THERAPEUTIC
     Dosage: 325 MG, QD
     Route: 048
     Dates: start: 20111018
  4. COMPAZINE                          /00013302/ [Concomitant]
     Indication: PAIN
     Dosage: UNK
     Route: 065
     Dates: start: 20111018
  5. DILAUDID [Concomitant]
     Indication: PAIN
     Dosage: UNK
     Route: 065
     Dates: start: 20111018
  6. EXCEDRIN MIGRAINE [Concomitant]
     Indication: PAIN
     Dosage: UNK
     Route: 065
     Dates: start: 20111018
  7. FIORICET [Concomitant]
     Indication: PAIN
     Dosage: UNK
     Route: 065
     Dates: start: 20111018
  8. KLONOPIN [Concomitant]
     Indication: PAIN
     Dosage: UNK
     Route: 065
     Dates: start: 20111018
  9. MANNITOL [Concomitant]
     Indication: PAIN
     Dosage: UNK
     Route: 065
     Dates: start: 20111018
  10. NAPROXIN                           /00256201/ [Concomitant]
     Indication: PAIN
     Dosage: UNK
     Route: 065
     Dates: start: 20111018
  11. TOPAMAX [Concomitant]
     Indication: PAIN
     Dosage: UNK
     Route: 065
     Dates: start: 20111018
  12. CELLCEPT                           /01275102/ [Concomitant]
     Indication: PRODUCT USED FOR UNKNOWN INDICATION
     Dosage: UNK
     Route: 065
     Dates: start: 20120511
  13. PROGRAF [Concomitant]
     Indication: PRODUCT USED FOR UNKNOWN INDICATION
     Dosage: UNK
     Route: 065
     Dates: start: 20120511
  14. SOLIRIS [Suspect]
     Indication: HAEMOLYTIC URAEMIC SYNDROME
     Dosage: 1200 MG, Q2W
     Route: 042
     Dates: start: 20111025
  15. ARANESP [Concomitant]
     Indication: PRODUCT USED FOR UNKNOWN INDICATION
     Dosage: 40 ?G, QW
     Route: 065
     Dates: start: 20060101
  16. EPOGEN [Concomitant]
     Indication: PRODUCT USED FOR UNKNOWN INDICATION
     Dosage: 600 UNITS, TIW
     Route: 065

REACTIONS (2)
  - Blood potassium increased [Recovered/Resolved]
  - Thrombotic microangiopathy [Unknown]
